APPROVED DRUG PRODUCT: TARGINIQ
Active Ingredient: NALOXONE HYDROCHLORIDE; OXYCODONE HYDROCHLORIDE
Strength: 5MG;10MG
Dosage Form/Route: TABLET, EXTENDED RELEASE;ORAL
Application: N205777 | Product #001
Applicant: PURDUE PHARMA LP
Approved: Jul 23, 2014 | RLD: Yes | RS: No | Type: DISCN